FAERS Safety Report 14582667 (Version 9)
Quarter: 2020Q3

REPORT INFORMATION
  Report Type: Spontaneous
  Country: NL (occurrence: NL)
  Receive Date: 20180228
  Receipt Date: 20200915
  Transmission Date: 20201102
  Serious: Yes (Other)
  Sender: FDA-Public Use
  Company Number: NL-TEVA-2018-NL-861615

PATIENT
  Age: 65 Year
  Sex: Female
  Weight: 61 kg

DRUGS (7)
  1. VALSARTAN TABLET OMHULD 160MG / DIOVAN TABLET OMHULD 160MG [Concomitant]
     Active Substance: VALSARTAN
     Dosage: 160 MILLIGRAM DAILY; 1DD1, THERAPY START DATE : ASKU, THERAPY END DATE : ASKU
  2. ACETYLSALICYLZUUR TABLET 80MG / BRAND NAME NOT SPECIFIED [Concomitant]
     Active Substance: ASPIRIN
     Dosage: 80 MILLIGRAM DAILY; 1DD1,THERAPY START DATE : ASKU, THERAPY END DATE : ASKU
  3. ROSUVASTATINE TABLET 5MG / CRESTOR TABLET FILMOMHULD 5MG [Concomitant]
     Active Substance: ROSUVASTATIN
     Dosage: 2.5 MILLIGRAM DAILY; 1DD 0,5 TABLET, THERAPY START DATE : ASKU, THERAPY END DATE : ASKU
  4. OMEPRAZOL TABLET MSR 20MG / LOSEC MUPS TABLET MSR 20MG [Concomitant]
     Active Substance: OMEPRAZOLE
     Dosage: 20 MILLIGRAM DAILY; 1DD1,  THERAPY START DATE : ASKU, THERAPY END DATE : ASKU
  5. EZETIMIB TABLET 10MG / EZETROL TABLET 10MG [Concomitant]
     Active Substance: EZETIMIBE
     Dosage: 10 MILLIGRAM DAILY; 1DD1, THERAPY START DATE : ASKU, THERAPY END DATE : ASKU
  6. LEVOCETIRIZINE TABLET FO 5MG / BRAND NAME NOT SPECIFIED [Suspect]
     Active Substance: LEVOCETIRIZINE
     Indication: SEASONAL ALLERGY
     Dosage: 2.5 MILLIGRAM DAILY; HALF TABLET PER DAY
     Route: 065
     Dates: start: 201705, end: 20170913
  7. BARNIDIPINE CAPSULE MGA 10MG / BRAND NAME NOT SPECIFIED [Concomitant]
     Active Substance: BARNIDIPINE
     Dosage: 10 MILLIGRAM DAILY; 1DD1, THERAPY START DATE : ASKU, THERAPY END DATE : ASKU

REACTIONS (1)
  - Arrhythmia [Recovered/Resolved]

NARRATIVE: CASE EVENT DATE: 20170613
